FAERS Safety Report 7560808-0 (Version None)
Quarter: 2011Q2

REPORT INFORMATION
  Report Type: 
  Country: None (occurrence: None)
  Receive Date: 20110621
  Receipt Date: 20110607
  Transmission Date: 20111010
  Serious: Yes (Other)
  Sender: FDA-Public Use
  Company Number: US-ROCHE-758678

PATIENT
  Sex: Female
  Weight: 95.4 kg

DRUGS (8)
  1. MAGNESIUM [Concomitant]
  2. PREVACID [Concomitant]
  3. CRESTOR [Concomitant]
  4. DYNACIRC [Concomitant]
  5. LEXAPRO [Concomitant]
  6. TOPROL-XL [Concomitant]
  7. BEVACIZUMAB [Suspect]
     Indication: OVARIAN STROMAL CANCER
     Dosage: OVER 30-90 MINUTES ON DAY 1, 1430 MG
     Route: 042
     Dates: start: 20091221
  8. IRON SUPPLEMENT [Concomitant]

REACTIONS (2)
  - HEARING IMPAIRED [None]
  - TINNITUS [None]
